FAERS Safety Report 20174445 (Version 1)
Quarter: 2021Q4

REPORT INFORMATION
  Report Type: Spontaneous
  Country: NL (occurrence: US)
  Receive Date: 20211213
  Receipt Date: 20211213
  Transmission Date: 20220303
  Serious: Yes (Other)
  Sender: FDA-Public Use
  Company Number: NL-AMGEN-USASP2021195115

PATIENT

DRUGS (1)
  1. TALIMOGENE LAHERPAREPVEC [Suspect]
     Active Substance: TALIMOGENE LAHERPAREPVEC
     Indication: Malignant melanoma
     Dosage: UNK
     Route: 026

REACTIONS (7)
  - Melanoma recurrent [Unknown]
  - Malignant melanoma [Unknown]
  - Therapy partial responder [Unknown]
  - Chills [Unknown]
  - Fatigue [Unknown]
  - Myalgia [Unknown]
  - Pyrexia [Unknown]
